FAERS Safety Report 8736462 (Version 2)
Quarter: 2012Q4

REPORT INFORMATION
  Report Type: Report from Study
  Country: DE (occurrence: DE)
  Receive Date: 20120822
  Receipt Date: 20120830
  Transmission Date: 20130627
  Serious: Yes (Congenital Anomaly)
  Sender: FDA-Public Use
  Company Number: DE-ROCHE-1102604

PATIENT

DRUGS (3)
  1. PEGASYS [Suspect]
     Indication: HEPATITIS C
     Route: 050
  2. COPEGUS [Suspect]
     Indication: HEPATITIS C
     Route: 050
  3. DACLATASVIR [Suspect]
     Indication: HEPATITIS C
     Route: 050

REACTIONS (4)
  - Foetal malformation [Unknown]
  - Exposure via father [Unknown]
  - Renal aplasia [None]
  - Paternal drugs affecting foetus [None]
